FAERS Safety Report 17236549 (Version 1)
Quarter: 2020Q1

REPORT INFORMATION
  Report Type: Spontaneous
  Country: US (occurrence: US)
  Receive Date: 20200106
  Receipt Date: 20200106
  Transmission Date: 20200409
  Serious: No
  Sender: FDA-Public Use
  Company Number: US-VERTEX PHARMACEUTICALS-2019-013902

PATIENT
  Sex: Female
  Weight: 61 kg

DRUGS (1)
  1. SYMDEKO [Suspect]
     Active Substance: IVACAFTOR\TEZACAFTOR
     Indication: CYSTIC FIBROSIS
     Dosage: 1 BLUE TABLET AM AND 1 YELLOW TABLET PM
     Route: 048
     Dates: start: 20180620

REACTIONS (2)
  - Influenza [Unknown]
  - Asthenia [Unknown]
